FAERS Safety Report 5878168-X (Version None)
Quarter: 2008Q3

REPORT INFORMATION
  Report Type: 
  Country: None (occurrence: None)
  Receive Date: 20080911
  Receipt Date: 20080903
  Transmission Date: 20090109
  Serious: Yes (Other)
  Sender: FDA-Public Use
  Company Number: CA-JNJCH-2008021304

PATIENT
  Sex: Female

DRUGS (1)
  1. VISINE EYE DROPS [Suspect]
     Indication: DRY EYE
     Dosage: TEXT: UNSPECIFIED, AS DIRECTED
     Route: 047

REACTIONS (1)
  - EYE IRRITATION [None]
